FAERS Safety Report 17284189 (Version 6)
Quarter: 2020Q3

REPORT INFORMATION
  Report Type: Spontaneous
  Country: JP (occurrence: JP)
  Receive Date: 20200117
  Receipt Date: 20200727
  Transmission Date: 20201102
  Serious: Yes (Hospitalization, Other)
  Sender: FDA-Public Use
  Company Number: JP-JNJFOC-20200120221

PATIENT
  Age: 85 Year
  Sex: Female
  Weight: 43 kg

DRUGS (15)
  1. REMINYL [Suspect]
     Active Substance: GALANTAMINE
     Route: 048
     Dates: start: 20191111, end: 20191208
  2. BAYASPIRIN [Concomitant]
     Active Substance: ASPIRIN
     Indication: PRODUCT USED FOR UNKNOWN INDICATION
     Route: 048
  3. REMINYL [Suspect]
     Active Substance: GALANTAMINE
     Route: 048
     Dates: start: 201807
  4. REMINYL [Suspect]
     Active Substance: GALANTAMINE
     Route: 048
     Dates: start: 201808
  5. ZACRAS [Concomitant]
     Active Substance: AMLODIPINE BESYLATE\AZILSARTAN
     Indication: HYPERTENSION
     Route: 048
  6. SPIROPENT [Suspect]
     Active Substance: CLENBUTEROL HYDROCHLORIDE
     Indication: STRESS URINARY INCONTINENCE
     Route: 048
     Dates: start: 20191018, end: 20191031
  7. TRICHLORMETHIAZIDE [Concomitant]
     Active Substance: TRICHLORMETHIAZIDE
     Indication: CARDIAC FAILURE
     Route: 048
  8. PITAVASTATIN CALCIUM [Concomitant]
     Active Substance: PITAVASTATIN CALCIUM
     Indication: DYSLIPIDAEMIA
     Route: 048
  9. REMINYL [Suspect]
     Active Substance: GALANTAMINE
     Route: 048
     Dates: start: 201806
  10. REMINYL [Suspect]
     Active Substance: GALANTAMINE
     Route: 048
     Dates: start: 201811, end: 20191031
  11. MAGNESIUM OXIDE. [Concomitant]
     Active Substance: MAGNESIUM OXIDE
     Indication: CONSTIPATION
     Route: 048
  12. REMINYL [Suspect]
     Active Substance: GALANTAMINE
     Indication: DEMENTIA ALZHEIMER^S TYPE
     Route: 048
     Dates: start: 201805
  13. REMINYL [Suspect]
     Active Substance: GALANTAMINE
     Route: 048
     Dates: start: 20191209
  14. LASIX [Concomitant]
     Active Substance: FUROSEMIDE
     Indication: CARDIAC FAILURE
     Route: 048
  15. SPIRONOLACTONE. [Concomitant]
     Active Substance: SPIRONOLACTONE
     Indication: CARDIAC FAILURE
     Route: 048

REACTIONS (8)
  - Toxicity to various agents [Recovered/Resolved]
  - Tremor [Recovering/Resolving]
  - Stress urinary incontinence [Unknown]
  - Vomiting [Recovered/Resolved]
  - Renal impairment [Unknown]
  - Wrong product administered [Unknown]
  - Seizure [Recovered/Resolved]
  - Product dose omission issue [Unknown]

NARRATIVE: CASE EVENT DATE: 201810
